FAERS Safety Report 5738984-1 (Version None)
Quarter: 2008Q2

REPORT INFORMATION
  Report Type: 
  Country: None (occurrence: None)
  Receive Date: 20080515
  Receipt Date: 20080505
  Transmission Date: 20081010
  Serious: No
  Sender: FDA-Public Use
  Company Number: BE-ROCHE-562693

PATIENT
  Age: 32 Year
  Sex: Female

DRUGS (3)
  1. ROACCUTANE [Suspect]
     Indication: ACNE
     Dosage: DOSAGE REGIMEN: DAILY.
     Route: 048
     Dates: end: 20080505
  2. NUVARING [Concomitant]
     Indication: CONTRACEPTION
     Route: 067
  3. NUVARING [Concomitant]
     Route: 067

REACTIONS (2)
  - NO ADVERSE EVENT [None]
  - PREGNANCY [None]
